FAERS Safety Report 6897029-0 (Version None)
Quarter: 2010Q3

REPORT INFORMATION
  Report Type: 
  Country: None (occurrence: None)
  Receive Date: 20100802
  Receipt Date: 20070410
  Transmission Date: 20110219
  Serious: No
  Sender: FDA-Public Use
  Company Number: US-PFIZER INC-2006147290

PATIENT
  Sex: Female
  Weight: 127.01 kg

DRUGS (2)
  1. LYRICA [Suspect]
     Indication: LUMBAR RADICULOPATHY
  2. LYRICA [Suspect]
     Indication: FACET JOINT SYNDROME

REACTIONS (1)
  - HEPATIC ENZYME INCREASED [None]
